FAERS Safety Report 22964561 (Version 2)
Quarter: 2025Q3

REPORT INFORMATION
  Report Type: Spontaneous
  Country: US (occurrence: US)
  Receive Date: 20230921
  Receipt Date: 20250729
  Transmission Date: 20251021
  Serious: Yes (Hospitalization, Other)
  Sender: SANOFI AVENTIS
  Company Number: US-SA-SAC20230919000864

PATIENT
  Age: 58 Year
  Sex: Male
  Weight: 88.4 kg

DRUGS (4)
  1. DUPIXENT [Suspect]
     Active Substance: DUPILUMAB
     Indication: Asthma
     Dosage: 300 MG, QOW
     Route: 058
  2. DUPIXENT [Suspect]
     Active Substance: DUPILUMAB
     Indication: Nasal polyps
  3. LOSARTAN POTASSIUM [Concomitant]
     Active Substance: LOSARTAN POTASSIUM
  4. TERIPARATIDE [Concomitant]
     Active Substance: TERIPARATIDE

REACTIONS (6)
  - Seizure [Unknown]
  - Blood sodium decreased [Unknown]
  - Surgery [Unknown]
  - Upper limb fracture [Unknown]
  - Shoulder fracture [Unknown]
  - Osteoporosis [Unknown]

NARRATIVE: CASE EVENT DATE: 20230101
